FAERS Safety Report 13587516 (Version 1)
Quarter: 2017Q2

REPORT INFORMATION
  Report Type: Spontaneous
  Country: US (occurrence: US)
  Receive Date: 20170526
  Receipt Date: 20170526
  Transmission Date: 20170830
  Serious: No
  Sender: FDA-Public Use
  Company Number: None

PATIENT
  Age: 51 Year
  Sex: Female
  Weight: 87.75 kg

DRUGS (3)
  1. ALLERGY MEDICATIONS [Concomitant]
     Active Substance: UNSPECIFIED INGREDIENT
  2. RANITIDINE. [Concomitant]
     Active Substance: RANITIDINE
  3. DIGITEK [Suspect]
     Active Substance: DIGOXIN
     Indication: ATRIAL FIBRILLATION
     Route: 048

REACTIONS (1)
  - Abdominal pain upper [None]

NARRATIVE: CASE EVENT DATE: 20170526
